FAERS Safety Report 5584803-6 (Version None)
Quarter: 2008Q1

REPORT INFORMATION
  Report Type: 
  Country: None (occurrence: None)
  Receive Date: 20080103
  Receipt Date: 20071219
  Transmission Date: 20080703
  Serious: Yes (Other)
  Sender: FDA-Public Use
  Company Number: LTI2007A00171

PATIENT
  Age: 51 Year
  Sex: Female

DRUGS (4)
  1. ACTOS [Suspect]
     Indication: TYPE 2 DIABETES MELLITUS
     Dosage: 30 MG (30 MG, 1 IN 1 D), ORAL
     Route: 048
  2. GLIMEPIRIDE [Concomitant]
  3. PROPRANOLOL [Concomitant]
  4. PAROXETINE HCL [Concomitant]

REACTIONS (5)
  - ARTHRALGIA [None]
  - BACK PAIN [None]
  - COMPRESSION FRACTURE [None]
  - FALL [None]
  - TIBIA FRACTURE [None]
